FAERS Safety Report 9996268 (Version 1)
Quarter: 2014Q1

REPORT INFORMATION
  Report Type: Spontaneous
  Country: US (occurrence: US)
  Receive Date: 20140311
  Receipt Date: 20140311
  Transmission Date: 20141002
  Serious: Yes (Disabling, Other)
  Sender: FDA-Public Use
  Company Number: US-ACTAVIS-2014-04012

PATIENT
  Sex: Female

DRUGS (3)
  1. HYDROCHLOROTHIAZIDE (WATSON LABORATORIES) [Suspect]
     Indication: PRODUCT USED FOR UNKNOWN INDICATION
     Dosage: UNK, UNKNOWN
     Route: 065
  2. DIOVAN [Concomitant]
     Indication: DIABETES MELLITUS
     Dosage: UNK, UNKNOWN
     Route: 065
  3. DIOVAN [Concomitant]
     Indication: BLOOD PRESSURE

REACTIONS (2)
  - Disability [Unknown]
  - Asthenia [Unknown]
